FAERS Safety Report 20694361 (Version 1)
Quarter: 2022Q2

REPORT INFORMATION
  Report Type: Report from Study
  Country: US (occurrence: US)
  Receive Date: 20220411
  Receipt Date: 20220411
  Transmission Date: 20220721
  Serious: Yes (Death, Other)
  Sender: FDA-Public Use
  Company Number: US-BRISTOL-MYERS SQUIBB COMPANY-2022-015456

PATIENT
  Age: 82 Year
  Sex: Male
  Weight: 100.6 kg

DRUGS (1)
  1. REVLIMID [Suspect]
     Active Substance: LENALIDOMIDE
     Indication: Follicular lymphoma stage II
     Dosage: DAILY 21 DAYS
     Route: 048
     Dates: start: 202202

REACTIONS (1)
  - Death [Fatal]
